FAERS Safety Report 23963593 (Version 5)
Quarter: 2024Q3

REPORT INFORMATION
  Report Type: Report from Study
  Country: US (occurrence: US)
  Receive Date: 20240611
  Receipt Date: 20240806
  Transmission Date: 20241017
  Serious: Yes (Disabling, Other)
  Sender: ABBVIE
  Company Number: US-ABBVIE-5276107

PATIENT
  Age: 70 Year
  Sex: Female
  Weight: 70 kg

DRUGS (19)
  1. SKYRIZI [Suspect]
     Active Substance: RISANKIZUMAB-RZAA
     Indication: Crohn^s disease
     Dosage: LAST ADMIN DATE: 2023?FORM STRENGTH: 2.4 MILLILITRE(S)
     Route: 058
     Dates: start: 20230425, end: 20240415
  2. SKYRIZI [Suspect]
     Active Substance: RISANKIZUMAB-RZAA
     Route: 058
  3. SKYRIZI [Suspect]
     Active Substance: RISANKIZUMAB-RZAA
     Route: 058
     Dates: start: 20240622
  4. SKYRIZI [Suspect]
     Active Substance: RISANKIZUMAB-RZAA
     Indication: Crohn^s disease
     Dosage: STRENGTH- 600 MG, WEEK 0
     Route: 042
     Dates: start: 20230127, end: 20230127
  5. SKYRIZI [Suspect]
     Active Substance: RISANKIZUMAB-RZAA
     Indication: Crohn^s disease
     Dosage: STRENGTH- 600 MG, WEEK 8
     Route: 042
     Dates: start: 20230325, end: 20230325
  6. SKYRIZI [Suspect]
     Active Substance: RISANKIZUMAB-RZAA
     Indication: Crohn^s disease
     Dosage: STRENGTH- 600 MG, WEEK 4
     Route: 042
     Dates: start: 20230225, end: 20230225
  7. MELOXICAM [Concomitant]
     Active Substance: MELOXICAM
     Indication: Arthralgia
     Dosage: FREQUENCY TEXT: AS NEEDED MORE THAN OD, STRENGTH: 7.5 MILLIGRAM
     Dates: start: 20230613
  8. BENADRYL [Concomitant]
     Active Substance: DIPHENHYDRAMINE HYDROCHLORIDE
     Indication: Sleep disorder
  9. MAGNESIUM [Concomitant]
     Active Substance: MAGNESIUM
     Indication: Mineral supplementation
     Route: 048
     Dates: start: 20230701
  10. AZELASTINE [Concomitant]
     Active Substance: AZELASTINE\AZELASTINE HYDROCHLORIDE
     Indication: Paranasal sinus hypersecretion
     Dosage: FREQUENCY TEXT: 1 SPRAY AS NEEDED, PRN?DURATION TEXT: FORM-LIQUID AND ROUTE- SPRAY
     Dates: start: 20230329
  11. VITAMIN C [Concomitant]
     Active Substance: ASCORBIC ACID
     Indication: Routine health maintenance
     Route: 048
     Dates: start: 20240201
  12. DULCOLAX STOOL SOFTENER [Concomitant]
     Active Substance: DOCUSATE SODIUM
     Indication: Crohn^s disease
     Route: 048
     Dates: start: 20230801
  13. LORATADINE [Concomitant]
     Active Substance: LORATADINE
     Indication: Dust allergy
     Dosage: FREQUENCY TEXT: PRN
     Route: 048
  14. BIOTIN [Concomitant]
     Active Substance: BIOTIN
     Indication: Alopecia
     Route: 048
     Dates: start: 20240318
  15. FLUTICASONE [Concomitant]
     Active Substance: FLUTICASONE
     Indication: Paranasal sinus hypersecretion
     Dosage: FREQUENCY TEXT: PRN?DURATION TEXT: FORM-LIQUID AND ROUTE- SPRAY
     Dates: start: 20230329
  16. VITAMIN D3 [Concomitant]
     Active Substance: CHOLECALCIFEROL
     Indication: Blood phosphorus
     Dosage: 25 MCG/1,000 IU
     Route: 048
     Dates: start: 20190626
  17. VOLTAREN [Concomitant]
     Active Substance: DICLOFENAC SODIUM
     Indication: Arthralgia
     Route: 061
     Dates: start: 20240415
  18. COVID-19 vaccine [Concomitant]
     Indication: COVID-19 immunisation
     Dosage: LATEST BIVALENT
     Route: 030
  19. LEVOTHYROXINE [Concomitant]
     Active Substance: LEVOTHYROXINE\LEVOTHYROXINE SODIUM
     Indication: Hyperthyroidism
     Dosage: START DATE TEXT: MORE THAN 30 YEARS
     Route: 048
     Dates: start: 1988

REACTIONS (49)
  - Back pain [Not Recovered/Not Resolved]
  - Dizziness [Recovered/Resolved]
  - Gastrooesophageal reflux disease [Recovered/Resolved]
  - Pain in extremity [Not Recovered/Not Resolved]
  - Hot flush [Recovering/Resolving]
  - Nerve compression [Recovered/Resolved]
  - Herpes zoster [Unknown]
  - Arthralgia [Recovered/Resolved]
  - Hot flush [Recovered/Resolved with Sequelae]
  - Flatulence [Not Recovered/Not Resolved]
  - Urinary tract infection [Unknown]
  - Pain in extremity [Not Recovered/Not Resolved]
  - Arthralgia [Recovering/Resolving]
  - Nerve compression [Recovered/Resolved]
  - Gastrointestinal disorder [Unknown]
  - Muscular weakness [Recovering/Resolving]
  - COVID-19 [Unknown]
  - Pain in extremity [Recovered/Resolved]
  - Back pain [Not Recovered/Not Resolved]
  - Muscular weakness [Not Recovered/Not Resolved]
  - Abdominal distension [Unknown]
  - Trigger finger [Not Recovered/Not Resolved]
  - Dyspepsia [Recovered/Resolved]
  - Iliotibial band syndrome [Recovering/Resolving]
  - Spondylolisthesis [Not Recovered/Not Resolved]
  - Bursitis [Recovered/Resolved]
  - Pain in extremity [Recovered/Resolved]
  - Feeling abnormal [Unknown]
  - Arthritis [Not Recovered/Not Resolved]
  - Greater trochanteric pain syndrome [Not Recovered/Not Resolved]
  - Pain in extremity [Recovered/Resolved]
  - Arthralgia [Recovered/Resolved]
  - Seborrhoeic dermatitis [Unknown]
  - Discomfort [Not Recovered/Not Resolved]
  - Flatulence [Unknown]
  - Arthralgia [Unknown]
  - Abdominal distension [Recovered/Resolved]
  - Dyspepsia [Not Recovered/Not Resolved]
  - Bursitis [Recovering/Resolving]
  - Flushing [Unknown]
  - Feeling hot [Unknown]
  - Large intestine polyp [Unknown]
  - Gastrooesophageal reflux disease [Not Recovered/Not Resolved]
  - Dizziness [Not Recovered/Not Resolved]
  - Haemorrhoids [Unknown]
  - Ileal ulcer [Unknown]
  - Arthropathy [Not Recovered/Not Resolved]
  - Arthralgia [Recovered/Resolved]
  - Dyspepsia [Not Recovered/Not Resolved]

NARRATIVE: CASE EVENT DATE: 20210521
